FAERS Safety Report 8450206-X (Version None)
Quarter: 2012Q2

REPORT INFORMATION
  Report Type: 
  Country: None (occurrence: None)
  Receive Date: 20120613
  Receipt Date: 20120530
  Transmission Date: 20120825
  Serious: Yes (Hospitalization)
  Sender: FDA-Public Use
  Company Number: DSM-2012-00573

PATIENT
  Age: 57 Year
  Sex: Female

DRUGS (5)
  1. LANTUS [Suspect]
     Indication: DIABETES MELLITUS
     Dosage: 24 U, SUBCUTANEOUS
     Route: 058
     Dates: start: 20090429
  2. NEBIVOLOL HYDROCHLORIDE [Concomitant]
  3. OLMESARTAN MEDOXOMIL AND HYDROCHLOROTHIZIDE [Suspect]
     Indication: HYPERTENSION
     Dosage: 20/12.5 MG, ORAL
     Route: 048
     Dates: start: 20100429, end: 20120429
  4. HUMALOG [Suspect]
     Indication: DIABETES MELLITUS
     Dosage: 36 U, SUBCUTANEOUS
     Route: 058
     Dates: start: 20090429
  5. ZOPRANOL (ZOFENOPRIL) (ZOFENOPRIL) [Concomitant]

REACTIONS (6)
  - METABOLIC DISORDER [None]
  - HYPOGLYCAEMIA [None]
  - HYPOKALAEMIA [None]
  - BLOOD ELECTROLYTES ABNORMAL [None]
  - HYPERGLYCAEMIA [None]
  - ELECTROCARDIOGRAM REPOLARISATION ABNORMALITY [None]
